FAERS Safety Report 5310264-8 (Version None)
Quarter: 2007Q2

REPORT INFORMATION
  Report Type: 
  Country: None (occurrence: None)
  Receive Date: 20070427
  Receipt Date: 20070413
  Transmission Date: 20071010
  Serious: Yes (Disabling)
  Sender: FDA-Public Use
  Company Number: CA-SHR-CA-2007-010001

PATIENT
  Age: 43 Year
  Sex: Female
  Weight: 84 kg

DRUGS (6)
  1. BETASERON [Suspect]
     Indication: SECONDARY PROGRESSIVE MULTIPLE SCLEROSIS
     Dosage: 8 MIU, 1 DOSE
     Route: 058
     Dates: start: 20070216, end: 20070216
  2. BETASERON [Suspect]
     Dosage: 3 INJECTIONS, 6 MIU, EVERY 2D
     Route: 058
     Dates: start: 20070201, end: 20070201
  3. BETASERON [Suspect]
     Dosage: 4 MIU, EVERY 2D
     Route: 058
     Dates: start: 20070201, end: 20070320
  4. BACLOFEN [Concomitant]
     Route: 048
  5. ARTHROTEC [Concomitant]
     Indication: ANTIINFLAMMATORY THERAPY
     Route: 048
  6. LYRICA [Concomitant]
     Route: 048

REACTIONS (4)
  - HEMIPLEGIA [None]
  - INCORRECT DOSE ADMINISTERED [None]
  - PARALYSIS [None]
  - PRURITUS [None]
